FAERS Safety Report 20712122 (Version 1)
Quarter: 2022Q2

REPORT INFORMATION
  Report Type: Report from Study
  Country: SE (occurrence: SE)
  Receive Date: 20220414
  Receipt Date: 20220414
  Transmission Date: 20220720
  Serious: Yes (Hospitalization)
  Sender: FDA-Public Use
  Company Number: SE-NOVARTISPH-NVSC2022SE080074

PATIENT
  Age: 74 Year
  Sex: Female

DRUGS (3)
  1. CAPMATINIB [Suspect]
     Active Substance: CAPMATINIB
     Indication: Lung neoplasm malignant
     Dosage: 200 MG, BID
     Route: 048
     Dates: start: 20220209, end: 20220329
  2. MAGNESIUM [Concomitant]
     Active Substance: MAGNESIUM
     Indication: Muscle disorder
     Dosage: 250 MG
     Route: 065
  3. MOMETASONE FUROATE [Concomitant]
     Active Substance: MOMETASONE FUROATE
     Indication: Swelling
     Dosage: 50 UG
     Route: 065

REACTIONS (8)
  - Liver disorder [Not Recovered/Not Resolved]
  - Malaise [Unknown]
  - Arthralgia [Recovered/Resolved]
  - Chills [Unknown]
  - Diaphragmalgia [Unknown]
  - Discomfort [Not Recovered/Not Resolved]
  - Pyrexia [Unknown]
  - Fatigue [Not Recovered/Not Resolved]

NARRATIVE: CASE EVENT DATE: 20220312
